FAERS Safety Report 4496553-8 (Version None)
Quarter: 2004Q4

REPORT INFORMATION
  Report Type: 
  Country: None (occurrence: None)
  Receive Date: 20041109
  Receipt Date: 20041029
  Transmission Date: 20050328
  Serious: Yes (Death)
  Sender: FDA-Public Use
  Company Number: FR-JNJFOC-20040806449

PATIENT
  Sex: Female

DRUGS (4)
  1. GALANTAMINE [Suspect]
     Route: 049
     Dates: end: 20040801
  2. CITALOPRAM [Concomitant]
     Route: 049
  3. ZOPICLONE [Concomitant]
     Route: 049
  4. HALOPERIDOL [Concomitant]
     Route: 065

REACTIONS (3)
  - DEHYDRATION [None]
  - DEPRESSION [None]
  - HYPERPYREXIA [None]
